FAERS Safety Report 17930231 (Version 1)
Quarter: 2020Q2

REPORT INFORMATION
  Report Type: Spontaneous
  Country: PT (occurrence: PT)
  Receive Date: 20200623
  Receipt Date: 20200623
  Transmission Date: 20200714
  Serious: Yes (Life-Threatening, Hospitalization, Other)
  Sender: FDA-Public Use
  Company Number: NVSC2020PT173309

PATIENT
  Age: 51 Year
  Sex: Female
  Weight: 72 kg

DRUGS (9)
  1. GESTODENE/ETHINYLESTRADIOL BIOGARAN [Interacting]
     Active Substance: ETHINYL ESTRADIOL\GESTODENE
     Indication: WEIGHT DECREASED
     Dosage: UNK
     Route: 048
  2. RHAMNUS PURSHIANA [Interacting]
     Active Substance: FRANGULA PURSHIANA BARK
     Indication: WEIGHT CONTROL
     Dosage: 120 MG, QD (60 MG, BID)
     Route: 048
     Dates: start: 201706, end: 201807
  3. BUPROPION. [Interacting]
     Active Substance: BUPROPION
     Indication: WEIGHT DECREASED
     Dosage: 240 MG, QD (120 MG, BID)
     Route: 048
     Dates: start: 201706, end: 201807
  4. TOPIRAMATE. [Interacting]
     Active Substance: TOPIRAMATE
     Indication: WEIGHT DECREASED
     Dosage: 70 MG, QD (35 MG, BID)
     Route: 048
     Dates: start: 201706, end: 201807
  5. LEVOTHYROXINE SODIUM. [Concomitant]
     Active Substance: LEVOTHYROXINE SODIUM
     Indication: HYPOTHYROIDISM
     Dosage: UNK
     Route: 048
     Dates: start: 2014
  6. FUROSEMIDE. [Interacting]
     Active Substance: FUROSEMIDE
     Indication: WEIGHT DECREASED
     Dosage: 60 MG, QD (30 MG, BID)
     Route: 048
     Dates: start: 201706, end: 201807
  7. METFORMIN [Suspect]
     Active Substance: METFORMIN HYDROCHLORIDE
     Indication: WEIGHT DECREASED
     Dosage: 460 MG, QD (230 MG, BID)
     Route: 048
     Dates: start: 201706, end: 201807
  8. CHLORDIAZEPOXIDE. [Interacting]
     Active Substance: CHLORDIAZEPOXIDE
     Indication: WEIGHT DECREASED
     Dosage: 20 MG, QD (10 MG, BID)
     Route: 048
     Dates: start: 201706
  9. TRI-GYNERA [Interacting]
     Active Substance: ETHINYL ESTRADIOL\GESTODENE
     Indication: CONTRACEPTION
     Dosage: 1 DF, QD
     Route: 048
     Dates: start: 2002, end: 201807

REACTIONS (5)
  - Product use in unapproved indication [Unknown]
  - Intentional product misuse [Unknown]
  - Headache [Recovering/Resolving]
  - Drug interaction [Unknown]
  - Cerebral venous thrombosis [Unknown]

NARRATIVE: CASE EVENT DATE: 20180619
